FAERS Safety Report 4388222-X (Version None)
Quarter: 2004Q2

REPORT INFORMATION
  Report Type: 
  Country: None (occurrence: None)
  Receive Date: 20040625
  Receipt Date: 20040616
  Transmission Date: 20050107
  Serious: Yes (Other)
  Sender: FDA-Public Use
  Company Number: 2004040553

PATIENT
  Age: 72 Year
  Sex: Male

DRUGS (1)
  1. LIPITOR [Suspect]
     Indication: ILL-DEFINED DISORDER

REACTIONS (5)
  - ASTHENIA [None]
  - COAGULOPATHY [None]
  - HEPATIC FAILURE [None]
  - LOCALISED INFECTION [None]
  - RENAL FAILURE [None]
